APPROVED DRUG PRODUCT: ONMEL
Active Ingredient: ITRACONAZOLE
Strength: 200MG
Dosage Form/Route: TABLET;ORAL
Application: N022484 | Product #001
Applicant: SEBELA IRELAND LTD
Approved: Apr 29, 2010 | RLD: Yes | RS: No | Type: DISCN

PATENTS:
Patent 8486456 | Expires: Oct 3, 2028